FAERS Safety Report 12053138 (Version 1)
Quarter: 2016Q1

REPORT INFORMATION
  Report Type: Report from Study
  Country: US (occurrence: US)
  Receive Date: 20160209
  Receipt Date: 20160209
  Transmission Date: 20160526
  Serious: No
  Sender: FDA-Public Use
  Company Number: US-ABBVIE-15P-163-1455777-00

PATIENT
  Age: 20 Year
  Sex: Male
  Weight: 72.64 kg

DRUGS (2)
  1. HUMIRA [Suspect]
     Active Substance: ADALIMUMAB
     Indication: CROHN^S DISEASE
     Route: 058
     Dates: start: 201206, end: 201508
  2. HUMIRA [Suspect]
     Active Substance: ADALIMUMAB
     Route: 058
     Dates: start: 20150816

REACTIONS (2)
  - Decreased appetite [Recovering/Resolving]
  - Crohn^s disease [Recovered/Resolved]

NARRATIVE: CASE EVENT DATE: 201412
